FAERS Safety Report 16608008 (Version 5)
Quarter: 2019Q4

REPORT INFORMATION
  Report Type: Spontaneous
  Country: JP (occurrence: JP)
  Receive Date: 20190722
  Receipt Date: 20191106
  Transmission Date: 20200122
  Serious: Yes (Hospitalization, Other)
  Sender: FDA-Public Use
  Company Number: JP-PFIZER INC-2019297520

PATIENT
  Age: 93 Year
  Sex: Male
  Weight: 39 kg

DRUGS (12)
  1. NACL [Concomitant]
     Active Substance: SODIUM CHLORIDE
     Dosage: 20 ML, 1X/DAY (CENTRAL VENOUS ROUTE)
     Dates: start: 20190709, end: 20190720
  2. FUROSEMIDE. [Suspect]
     Active Substance: FUROSEMIDE
     Indication: CARDIAC FAILURE
     Dosage: 20 MG, 1X/DAY
     Route: 048
     Dates: start: 20190629
  3. SOLITA-T3 [Concomitant]
     Active Substance: POTASSIUM CHLORIDE\SODIUM CHLORIDE\SODIUM LACTATE
     Dosage: 500 ML, 3X/DAY
     Route: 042
     Dates: start: 20190627, end: 20190628
  4. ZYVOX [Suspect]
     Active Substance: LINEZOLID
     Indication: STAPHYLOCOCCAL SEPSIS
  5. BFLUID [Concomitant]
     Active Substance: AMINO ACIDS\DEXTROSE\ELECTROLYTES NOS\VITAMINS
     Dosage: 500 ML, 3X/DAY (PERIPHERAL VENOUS ROUTE)
     Dates: start: 20190629, end: 20190708
  6. SOLDEM 3A [Concomitant]
     Active Substance: CARBOHYDRATES\POTASSIUM CHLORIDE\SODIUM CHLORIDE\SODIUM LACTATE
     Dosage: UNK
  7. SPIRONOLACTONE. [Suspect]
     Active Substance: SPIRONOLACTONE
     Indication: CARDIAC FAILURE
     Dosage: 25 MG, 1X/DAY
     Route: 048
     Dates: start: 20190629, end: 20190710
  8. LANSOPRAZOLE. [Concomitant]
     Active Substance: LANSOPRAZOLE
     Indication: PROPHYLAXIS AGAINST GASTROINTESTINAL ULCER
     Dosage: 15 MG, 1X/DAY
     Route: 048
     Dates: start: 20190629
  9. ZYVOX [Suspect]
     Active Substance: LINEZOLID
     Indication: BACTERAEMIA
     Dosage: 600 MG, 2X/DAY
     Route: 041
     Dates: start: 20190630, end: 20190717
  10. SOLITA-T3 [Concomitant]
     Active Substance: POTASSIUM CHLORIDE\SODIUM CHLORIDE\SODIUM LACTATE
     Dosage: 500 ML, 2X/DAY (BY CENTRAL VENOUS ROUTE)
     Dates: start: 20190718, end: 20190802
  11. SOLDEM 1 [Concomitant]
     Active Substance: DEXTROSE\SODIUM CHLORIDE\SODIUM LACTATE
     Dosage: 500 ML, 2X/DAY (BY CENTRAL VENOUS ROUTE)
     Dates: start: 20190709, end: 20190717
  12. NACL [Concomitant]
     Active Substance: SODIUM CHLORIDE
     Dosage: 20 ML, 2X/DAY (CENTRAL VENOUS ROUTE)
     Dates: start: 20190721, end: 20190802

REACTIONS (5)
  - Haemoglobin decreased [Recovering/Resolving]
  - Bone marrow failure [Unknown]
  - Renal impairment [Recovered/Resolved]
  - Blood sodium decreased [Not Recovered/Not Resolved]
  - Platelet count decreased [Recovered/Resolved]

NARRATIVE: CASE EVENT DATE: 20190701
